FAERS Safety Report 14232752 (Version 2)
Quarter: 2018Q1

REPORT INFORMATION
  Report Type: Spontaneous
  Country: AR (occurrence: AR)
  Receive Date: 20171129
  Receipt Date: 20180117
  Transmission Date: 20180508
  Serious: Yes (Death, Hospitalization)
  Sender: FDA-Public Use
  Company Number: AR-ASTRAZENECA-2017SF20163

PATIENT
  Age: 92 Year
  Sex: Female

DRUGS (1)
  1. TAGRISSO [Suspect]
     Active Substance: OSIMERTINIB
     Route: 048
     Dates: start: 20170820, end: 20171120

REACTIONS (4)
  - Femur fracture [Fatal]
  - Death [Fatal]
  - Fall [Fatal]
  - Gait disturbance [Fatal]

NARRATIVE: CASE EVENT DATE: 20171120
